FAERS Safety Report 4569364-2 (Version None)
Quarter: 2005Q1

REPORT INFORMATION
  Report Type: 
  Country: None (occurrence: None)
  Receive Date: 20050201
  Receipt Date: 20050121
  Transmission Date: 20050727
  Serious: Yes (Hospitalization, Other)
  Sender: FDA-Public Use
  Company Number: 2004091437

PATIENT
  Age: 83 Year
  Sex: Female
  Weight: 53.5244 kg

DRUGS (4)
  1. BEXTRA [Suspect]
     Indication: OSTEOPOROSIS
     Dosage: 20 MG (20 MG, QD INTERVAL: EVERY DAY), ORAL
     Route: 048
     Dates: start: 20021202, end: 20021209
  2. LIPITOR [Suspect]
     Indication: BLOOD CHOLESTEROL INCREASED
     Dosage: 10 MG (10 MG, 1 IN 1 D), ORAL
     Route: 048
     Dates: start: 19971020, end: 20021209
  3. ALL OTHER THERAPEUTIC PRODUCTS (ALL OTHER THERAPEUTIC PRODUCTS) [Suspect]
     Indication: ORAL MUCOSAL BLISTERING
     Dates: start: 20021201
  4. METOPROLOL TARTRATE [Suspect]
     Indication: HYPERTENSION
     Dates: start: 20040101, end: 20040101

REACTIONS (10)
  - CYSTITIS [None]
  - HYPERSENSITIVITY [None]
  - HYPERTENSION [None]
  - OSTEOPOROSIS [None]
  - PAIN [None]
  - RASH [None]
  - STEVENS-JOHNSON SYNDROME [None]
  - URTICARIA [None]
  - VULVOVAGINAL DISCOMFORT [None]
  - WEIGHT DECREASED [None]
